FAERS Safety Report 15543587 (Version 1)
Quarter: 2018Q4

REPORT INFORMATION
  Report Type: Spontaneous
  Country: US (occurrence: US)
  Receive Date: 20181023
  Receipt Date: 20181023
  Transmission Date: 20190205
  Serious: No
  Sender: FDA-Public Use
  Company Number: US-BAUSCH-BL-2018-010912

PATIENT
  Sex: Female
  Weight: 74.84 kg

DRUGS (8)
  1. ADDERALL XR [Suspect]
     Active Substance: AMPHETAMINE ASPARTATE\AMPHETAMINE SULFATE\DEXTROAMPHETAMINE SACCHARATE\DEXTROAMPHETAMINE SULFATE
     Dosage: THREE A DAY
     Route: 065
  2. GENERIC XANAX XR [Suspect]
     Active Substance: ALPRAZOLAM
     Indication: PRODUCT USED FOR UNKNOWN INDICATION
     Route: 065
  3. DEXTROAMPHET SACCHARAT, AMPHET ASPARTATE, DEXTROAMPHET SULFATE AND AMPHET SULFAT [Suspect]
     Active Substance: AMPHETAMINE ASPARTATE\AMPHETAMINE SULFATE\DEXTROAMPHETAMINE SACCHARATE\DEXTROAMPHETAMINE SULFATE
     Indication: ATTENTION DEFICIT/HYPERACTIVITY DISORDER
     Route: 065
  4. XANAX XR [Suspect]
     Active Substance: ALPRAZOLAM
     Dosage: MISSED FOR 2.5 MONTHS AND RESTARTED ON AN UNKNOWN DATE
     Route: 065
  5. ADDERALL XR [Suspect]
     Active Substance: AMPHETAMINE ASPARTATE\AMPHETAMINE SULFATE\DEXTROAMPHETAMINE SACCHARATE\DEXTROAMPHETAMINE SULFATE
     Indication: ATTENTION DEFICIT/HYPERACTIVITY DISORDER
     Dosage: EXTENDED RELEASE, 5 MG TABLET BY MOUTH UP TO 2 TIMES A DAY
     Route: 048
  6. WELLBUTRIN XL [Suspect]
     Active Substance: BUPROPION HYDROCHLORIDE
     Indication: DEPRESSION
     Dosage: WELLBUTRIN EXTENDED RELEASE
     Route: 048
  7. GENERIC WELLBUTRIN [Suspect]
     Active Substance: BUPROPION HYDROCHLORIDE
     Indication: DEPRESSION
     Route: 065
  8. XANAX XR [Suspect]
     Active Substance: ALPRAZOLAM
     Indication: ANXIETY
     Dosage: EXTENDED RELEASE TABLETS, 2 MG TABLET UP TO TWO TIMES A DAY
     Route: 048

REACTIONS (9)
  - Weight decreased [Unknown]
  - Loss of personal independence in daily activities [Unknown]
  - Starvation [Unknown]
  - Treatment noncompliance [Unknown]
  - Hypertension [Unknown]
  - Anxiety [Unknown]
  - Ill-defined disorder [Unknown]
  - Insomnia [Recovering/Resolving]
  - Decreased appetite [Unknown]
